FAERS Safety Report 8552841-7 (Version None)
Quarter: 2012Q3

REPORT INFORMATION
  Report Type: 
  Country: None (occurrence: None)
  Receive Date: 20120731
  Receipt Date: 20120726
  Transmission Date: 20120928
  Serious: Yes (Hospitalization, Other)
  Sender: FDA-Public Use
  Company Number: PHHY2012BR055913

PATIENT
  Sex: Female
  Weight: 130 kg

DRUGS (3)
  1. OLCADIL [Concomitant]
     Indication: ANXIETY
     Dosage: 1 TABLET (4 MG), QD
     Route: 060
  2. DIOVAN HCT [Suspect]
     Indication: HYPERTENSION
     Dosage: 1 DF (160/12.5 MG),UNK
     Route: 048
  3. DIOVAN HCT [Suspect]
     Dosage: 1 DF (160/25 MG), A DAY

REACTIONS (10)
  - MALAISE [None]
  - DIARRHOEA [None]
  - NAUSEA [None]
  - CARDIAC DISORDER [None]
  - PERIPHERAL COLDNESS [None]
  - ASTHMA [None]
  - BRONCHITIS [None]
  - CHEST PAIN [None]
  - FEELING ABNORMAL [None]
  - BLOOD PRESSURE INCREASED [None]
